FAERS Safety Report 9729915 (Version 3)
Quarter: 2014Q2

REPORT INFORMATION
  Report Type: Spontaneous
  Country: AU (occurrence: None)
  Receive Date: 20131203
  Receipt Date: 20140429
  Transmission Date: 20141212
  Serious: Yes (Other)
  Sender: FDA-Public Use
  Company Number: AUR-APL-2013-09811

PATIENT
  Age: 31 Year
  Sex: Female

DRUGS (2)
  1. METFORMIN [Suspect]
     Indication: POLYCYSTIC OVARIES
     Dosage: 1000 MG (500 MG, 2 IN 1 D), UNKNOWN
  2. METFORMIN [Suspect]
     Indication: OLIGOMENORRHOEA
     Dosage: 1000 MG (500 MG, 2 IN 1 D), UNKNOWN

REACTIONS (2)
  - Polycystic ovaries [None]
  - Oligomenorrhoea [None]
